FAERS Safety Report 11574373 (Version 1)
Quarter: 2015Q3

REPORT INFORMATION
  Report Type: Spontaneous
  Country: US (occurrence: None)
  Receive Date: 20150929
  Receipt Date: 20150929
  Transmission Date: 20151125
  Serious: No
  Sender: FDA-Public Use
  Company Number: None

PATIENT
  Age: 75 Year
  Sex: Female
  Weight: 63.5 kg

DRUGS (9)
  1. BETA BLOCKER [Concomitant]
     Active Substance: UNSPECIFIED INGREDIENT
  2. ZOCOR [Concomitant]
     Active Substance: SIMVASTATIN
  3. DULOXETINE. [Suspect]
     Active Substance: DULOXETINE
     Indication: CEREBROVASCULAR ACCIDENT
     Dosage: 1 PILL   30 MG THEN 60 MG THEN BACK 30
     Route: 048
     Dates: start: 20150810, end: 20150906
  4. XANAX [Concomitant]
     Active Substance: ALPRAZOLAM
  5. DULOXETINE. [Suspect]
     Active Substance: DULOXETINE
     Indication: DEATH OF RELATIVE
     Dosage: 1 PILL   30 MG THEN 60 MG THEN BACK 30
     Route: 048
     Dates: start: 20150810, end: 20150906
  6. DULOXETINE. [Suspect]
     Active Substance: DULOXETINE
     Indication: DEPRESSION
     Dosage: 1 PILL   30 MG THEN 60 MG THEN BACK 30
     Route: 048
     Dates: start: 20150810, end: 20150906
  7. GABAPENTIN. [Concomitant]
     Active Substance: GABAPENTIN
  8. FISH OIL [Concomitant]
     Active Substance: FISH OIL
  9. CARVEDILOL. [Concomitant]
     Active Substance: CARVEDILOL

REACTIONS (7)
  - Pain in extremity [None]
  - Feeling abnormal [None]
  - Swelling [None]
  - Dizziness [None]
  - Gait disturbance [None]
  - Bone pain [None]
  - Skin discolouration [None]
